FAERS Safety Report 5935155-0 (Version None)
Quarter: 2008Q4

REPORT INFORMATION
  Report Type: 
  Country: None (occurrence: None)
  Receive Date: 20081030
  Receipt Date: 20081022
  Transmission Date: 20090506
  Serious: Yes (Other)
  Sender: FDA-Public Use
  Company Number: GB-JNJFOC-20080904407

PATIENT
  Age: 72 Year
  Sex: Male

DRUGS (5)
  1. RISPERIDONE [Suspect]
     Indication: DRUG USE FOR UNKNOWN INDICATION
     Dosage: 1MG IN THE MORNING, 2MG IN THE EVENING
     Route: 048
  2. CITALOPRAM HYDROBROMIDE [Concomitant]
     Route: 065
  3. MELOXICAM [Concomitant]
     Route: 065
  4. DIAZEPAM [Concomitant]
     Route: 065
  5. LACTULOSE [Concomitant]
     Route: 065

REACTIONS (4)
  - ANAEMIA MACROCYTIC [None]
  - AUTONOMIC NERVOUS SYSTEM IMBALANCE [None]
  - ORTHOSTATIC HYPOTENSION [None]
  - WEIGHT DECREASED [None]
